FAERS Safety Report 24827415 (Version 5)
Quarter: 2025Q3

REPORT INFORMATION
  Report Type: Spontaneous
  Country: US (occurrence: US)
  Receive Date: 20250109
  Receipt Date: 20250822
  Transmission Date: 20251021
  Serious: No
  Sender: SANOFI AVENTIS
  Company Number: US-SANOFI-02363831

PATIENT
  Age: 80 Year
  Sex: Male

DRUGS (4)
  1. ADMELOG [Suspect]
     Active Substance: INSULIN LISPRO
     Indication: Type 1 diabetes mellitus
     Route: 042
  2. ADMELOG [Suspect]
     Active Substance: INSULIN LISPRO
     Route: 042
  3. APIDRA SOLOSTAR [Concomitant]
     Active Substance: INSULIN GLULISINE
  4. LANTUS SOLOSTAR [Concomitant]
     Active Substance: INSULIN GLARGINE

REACTIONS (8)
  - Injection site atrophy [Unknown]
  - Multiple use of single-use product [Unknown]
  - Needle issue [Unknown]
  - Blood glucose increased [Unknown]
  - Product dose omission in error [Unknown]
  - Incorrect route of product administration [Unknown]
  - Therapeutic response delayed [Unknown]
  - Intentional product misuse [Unknown]
